FAERS Safety Report 13609199 (Version 2)
Quarter: 2017Q3

REPORT INFORMATION
  Report Type: Spontaneous
  Country: US (occurrence: US)
  Receive Date: 20170602
  Receipt Date: 20170718
  Transmission Date: 20171127
  Serious: Yes (Other)
  Sender: FDA-Public Use
  Company Number: US-NOVOPROD-547435

PATIENT
  Age: 49 Year
  Sex: Female

DRUGS (3)
  1. NOVOLOG [Suspect]
     Active Substance: INSULIN ASPART
     Dosage: 21 U, QD(6 UNITS BEFORE BREAKFAST, 8 UNITS BEFORE LUNCH AND 7 UNITS BEFORE DINNER)
     Route: 058
     Dates: start: 201705, end: 201705
  2. NOVOLOG [Suspect]
     Active Substance: INSULIN ASPART
     Indication: TYPE 2 DIABETES MELLITUS
     Dosage: UNK
     Route: 058
  3. NOVOLOG [Suspect]
     Active Substance: INSULIN ASPART
     Dosage: 21 U, QD(6 UNITS BEFORE BREAKFAST, 8 UNITS BEFORE LUNCH AND 7 UNITS BEFORE DINNER)
     Route: 058

REACTIONS (4)
  - Tooth infection [Recovered/Resolved]
  - Device malfunction [Unknown]
  - Incorrect dose administered by device [Unknown]
  - Blood glucose increased [Recovered/Resolved]

NARRATIVE: CASE EVENT DATE: 201705
